FAERS Safety Report 9345030 (Version 1)
Quarter: 2013Q2

REPORT INFORMATION
  Report Type: Spontaneous
  Country: IT (occurrence: IT)
  Receive Date: 20130612
  Receipt Date: 20130612
  Transmission Date: 20140414
  Serious: Yes (Hospitalization, Other)
  Sender: FDA-Public Use
  Company Number: IT-TEVA-411371ISR

PATIENT
  Age: 80 Year
  Sex: Male

DRUGS (9)
  1. VINCRISTINA [Suspect]
     Indication: NON-HODGKIN^S LYMPHOMA
     Dosage: 1.4MG, CYCLICAL
     Route: 042
     Dates: start: 20111001, end: 20120125
  2. MABTHERA [Suspect]
     Indication: NON-HODGKIN^S LYMPHOMA
     Dosage: 375MG, CYCLICAL
     Route: 042
     Dates: start: 20110930, end: 20120424
  3. FARMORUBICINA [Suspect]
     Indication: NON-HODGKIN^S LYMPHOMA
     Dosage: 90MG, CYCLICAL, POWDER FOR SOLUTION FOR INTRAVENOUS OR INTRAVESICAL INFUSION
     Route: 042
     Dates: start: 20111001, end: 20120125
  4. ENDOXAN [Suspect]
     Indication: NON-HODGKIN^S LYMPHOMA
     Dosage: 750MG, CYCLICAL, POWDER FOR INJECTABLE SOLUTION
     Route: 042
     Dates: start: 20111001, end: 20120125
  5. PREDNISONE [Concomitant]
     Dates: start: 20120126, end: 20120129
  6. RANITIDINA HEXAL 50MG/5ML [Concomitant]
     Dates: start: 20120124, end: 20120124
  7. TRIMETON 10MG/1ML [Concomitant]
     Dates: start: 20120124, end: 20120124
  8. URBASON SOLUBILE 40MG/ML [Concomitant]
     Dosage: POWDER AND SOLVENT FOR INJECTABLE SOLUTION
     Dates: start: 20120124, end: 20120125
  9. TACHIPIRINA 500MG [Concomitant]
     Dates: start: 20120124, end: 20120124

REACTIONS (4)
  - Pancytopenia [Recovered/Resolved]
  - Diarrhoea [Recovered/Resolved]
  - Vomiting [Recovered/Resolved]
  - Hyperpyrexia [Recovered/Resolved]
